FAERS Safety Report 12759229 (Version 1)
Quarter: 2016Q3

REPORT INFORMATION
  Report Type: Spontaneous
  Country: US (occurrence: US)
  Receive Date: 20160919
  Receipt Date: 20160919
  Transmission Date: 20161109
  Serious: Yes (Other)
  Sender: FDA-Public Use
  Company Number: US-TEVA-693670USA

PATIENT
  Sex: Female
  Weight: 63.56 kg

DRUGS (1)
  1. CARTIA XT [Suspect]
     Active Substance: DILTIAZEM HYDROCHLORIDE

REACTIONS (3)
  - Dizziness [Unknown]
  - Anal incontinence [Unknown]
  - Coeliac disease [Unknown]

NARRATIVE: CASE EVENT DATE: 2016
